FAERS Safety Report 17064181 (Version 1)
Quarter: 2019Q4

REPORT INFORMATION
  Report Type: Report from Study
  Country: GB (occurrence: GB)
  Receive Date: 20191122
  Receipt Date: 20191122
  Transmission Date: 20200122
  Serious: Yes (Other)
  Sender: FDA-Public Use
  Company Number: GB-MYLANLABS-2019M1110584

PATIENT
  Sex: Male

DRUGS (2)
  1. BRABIO 40 MG/ML SOLUTION FOR INJECTION, PRE-FILLED-SYRINGE [Suspect]
     Active Substance: GLATIRAMER ACETATE
     Indication: MULTIPLE SCLEROSIS
     Dosage: 40 MILLIGRAM, 3XW
     Route: 058
     Dates: start: 20001005
  2. BRABIO 40 MG/ML SOLUTION FOR INJECTION, PRE-FILLED-SYRINGE [Suspect]
     Active Substance: GLATIRAMER ACETATE
     Dosage: 40 MILLIGRAM, 3XW
     Route: 058
     Dates: start: 2019

REACTIONS (3)
  - Injection site discolouration [Recovering/Resolving]
  - Injection site induration [Recovering/Resolving]
  - Drug ineffective [Unknown]
